FAERS Safety Report 9399204 (Version 5)
Quarter: 2013Q4

REPORT INFORMATION
  Report Type: Spontaneous
  Country: GB (occurrence: None)
  Receive Date: 20130710
  Receipt Date: 20131211
  Transmission Date: 20140711
  Serious: Yes (Other)
  Sender: FDA-Public Use
  Company Number: AUR-APL-2013-05711

PATIENT
  Age: 43 Year
  Sex: Male

DRUGS (3)
  1. MONTELUKAST [Suspect]
     Indication: PRODUCT USED FOR UNKNOWN INDICATION
     Dosage: 10 MG (10 MG, 1 IN 1 D), UNKNOWN
  2. SALMETEROL AND FLUTICASONE [Suspect]
     Indication: PRODUCT USED FOR UNKNOWN INDICATION
     Dosage: 2 PUFFS (2 IN 1 D), INHALATION
     Route: 055
  3. VENTOLIN (SALBUTAMOL) [Suspect]
     Indication: PRODUCT USED FOR UNKNOWN INDICATION
     Dosage: 1 DOSAGE FORMS, 1 AS REQUIRED, INHALATION
     Route: 055

REACTIONS (6)
  - Pigment dispersion syndrome [None]
  - Tenon^s cyst [None]
  - Dysaesthesia [None]
  - Diplopia [None]
  - Blebitis [None]
  - Pigmentary glaucoma [None]
